FAERS Safety Report 4581990-3 (Version None)
Quarter: 2005Q1

REPORT INFORMATION
  Report Type: 
  Country: None (occurrence: None)
  Receive Date: 20050119
  Receipt Date: 20041018
  Transmission Date: 20050727
  Serious: Yes (Other)
  Sender: FDA-Public Use
  Company Number: US-JNJFOC-20040908479

PATIENT
  Age: 56 Year
  Sex: Female
  Weight: 85.2762 kg

DRUGS (5)
  1. DOXIL [Suspect]
     Indication: LEIOMYOSARCOMA
     Dosage: 74 MG, INTRAVENOUS
     Route: 042
     Dates: start: 20040921
  2. COUMADIN [Concomitant]
  3. HOMEOPATHIC REMEDIES (ALL OTHER THERAPEUTIC PRODUCTS) [Concomitant]
  4. BENADRYL [Concomitant]
  5. DECADRON [Concomitant]

REACTIONS (4)
  - INFUSION RELATED REACTION [None]
  - ORAL CANDIDIASIS [None]
  - PALMAR-PLANTAR ERYTHRODYSAESTHESIA SYNDROME [None]
  - RASH GENERALISED [None]
